FAERS Safety Report 25756918 (Version 1)
Quarter: 2025Q3

REPORT INFORMATION
  Report Type: Spontaneous
  Country: US (occurrence: US)
  Receive Date: 20250903
  Receipt Date: 20250903
  Transmission Date: 20251020
  Serious: No
  Sender: Haleon PLC
  Company Number: US-HALEON-2260958

PATIENT

DRUGS (1)
  1. THERAFLU-D FLU RELIEF MAX STRENGTH PLUS NASAL DECONGESTANT [Suspect]
     Active Substance: ACETAMINOPHEN\DEXTROMETHORPHAN HYDROBROMIDE\PSEUDOEPHEDRINE HYDROCHLORIDE
     Indication: Product used for unknown indication

REACTIONS (2)
  - Somnolence [Unknown]
  - Product taste abnormal [Unknown]
